FAERS Safety Report 5604023-6 (Version None)
Quarter: 2008Q1

REPORT INFORMATION
  Report Type: 
  Country: None (occurrence: None)
  Receive Date: 20080123
  Receipt Date: 20080123
  Transmission Date: 20080703
  Serious: Yes (Death)
  Sender: FDA-Public Use
  Company Number: None

PATIENT
  Sex: Female

DRUGS (2)
  1. ARIXTRA [Suspect]
     Indication: CHRONIC LYMPHOCYTIC LEUKAEMIA
     Dosage: 5 MG DAILY SQ
     Route: 058
  2. ARIXTRA [Suspect]
     Indication: DEEP VEIN THROMBOSIS
     Dosage: 5 MG DAILY SQ
     Route: 058

REACTIONS (4)
  - CYTOMEGALOVIRUS INFECTION [None]
  - DISEASE PROGRESSION [None]
  - SEPSIS [None]
  - UNEVALUABLE EVENT [None]
